FAERS Safety Report 8553868-1 (Version None)
Quarter: 2012Q3

REPORT INFORMATION
  Report Type: 
  Country: None (occurrence: None)
  Receive Date: 20120731
  Receipt Date: 20120725
  Transmission Date: 20120928
  Serious: Yes (Other)
  Sender: FDA-Public Use
  Company Number: DE-BAYER-2012-074674

PATIENT

DRUGS (1)
  1. AVELOX [Suspect]

REACTIONS (1)
  - AGEUSIA [None]
